FAERS Safety Report 23342708 (Version 1)
Quarter: 2023Q4

REPORT INFORMATION
  Report Type: Spontaneous
  Country: GB (occurrence: GB)
  Receive Date: 20231227
  Receipt Date: 20231227
  Transmission Date: 20240110
  Serious: Yes (Hospitalization)
  Sender: FDA-Public Use
  Company Number: GB-MYLANLABS-2023M1135307

PATIENT
  Sex: Male

DRUGS (1)
  1. CLOZARIL [Suspect]
     Active Substance: CLOZAPINE
     Indication: Schizophrenia
     Dosage: UNK
     Route: 048
     Dates: start: 20221114, end: 202312

REACTIONS (3)
  - Psychotic disorder [Unknown]
  - Therapy interrupted [Unknown]
  - Malaise [Unknown]

NARRATIVE: CASE EVENT DATE: 20231212
